FAERS Safety Report 5753935-1 (Version None)
Quarter: 2008Q2

REPORT INFORMATION
  Report Type: 
  Country: None (occurrence: None)
  Receive Date: 20080527
  Receipt Date: 20080513
  Transmission Date: 20081010
  Serious: Yes (Hospitalization, Disabling)
  Sender: FDA-Public Use
  Company Number: 000772

PATIENT
  Age: 66 Year
  Sex: Male

DRUGS (2)
  1. PLETAL       (PLETAL) [Suspect]
     Indication: INTERMITTENT CLAUDICATION
     Dosage: 100 MG, BID
     Route: 048
     Dates: start: 20070417, end: 20071101
  2. SIMVASTATIN [Concomitant]

REACTIONS (1)
  - ISCHAEMIC STROKE [None]
